FAERS Safety Report 21409716 (Version 3)
Quarter: 2022Q4

REPORT INFORMATION
  Report Type: Spontaneous
  Country: US (occurrence: US)
  Receive Date: 20221005
  Receipt Date: 20221023
  Transmission Date: 20230112
  Serious: No
  Sender: FDA-Public Use
  Company Number: US-BIOGEN-2022BI01157607

PATIENT
  Age: 16 Year
  Sex: Male

DRUGS (7)
  1. SPINRAZA [Suspect]
     Active Substance: NUSINERSEN
     Indication: Spinal muscular atrophy
     Dosage: LOADING DOSE EVERY 14 DAYS
     Route: 050
     Dates: start: 2018
  2. SPINRAZA [Suspect]
     Active Substance: NUSINERSEN
     Dosage: LOADING DOSE EVERY  14 DAYS
     Route: 050
  3. SPINRAZA [Suspect]
     Active Substance: NUSINERSEN
     Dosage: LOADING DOSE EVERY 14 DAYS
     Route: 050
  4. SPINRAZA [Suspect]
     Active Substance: NUSINERSEN
     Dosage: LOADING DOSE ONCE AFTER 30 DAYS
     Route: 050
  5. SPINRAZA [Suspect]
     Active Substance: NUSINERSEN
     Dosage: MAINTENANCE DOSE
     Route: 050
  6. SPINRAZA [Suspect]
     Active Substance: NUSINERSEN
     Route: 050
     Dates: start: 20180518
  7. LORATADINE [Concomitant]
     Active Substance: LORATADINE
     Indication: Product used for unknown indication
     Dosage: 10 MLS (10 MG TOTAL) DAILY.
     Route: 050

REACTIONS (9)
  - Obstructive sleep apnoea syndrome [Unknown]
  - Migraine [Unknown]
  - Scoliosis [Unknown]
  - Diplopia [Unknown]
  - Underweight [Unknown]
  - Red blood cell count decreased [Unknown]
  - Protein urine present [Unknown]
  - International normalised ratio increased [Unknown]
  - Post lumbar puncture syndrome [Not Recovered/Not Resolved]

NARRATIVE: CASE EVENT DATE: 20220921
